FAERS Safety Report 14340066 (Version 2)
Quarter: 2018Q1

REPORT INFORMATION
  Report Type: Spontaneous
  Country: US (occurrence: US)
  Receive Date: 20171231
  Receipt Date: 20180105
  Transmission Date: 20180509
  Serious: Yes (Hospitalization, Other)
  Sender: FDA-Public Use
  Company Number: US-009507513-1205USA05079

PATIENT
  Sex: Female

DRUGS (3)
  1. ALENDRONATE SODIUM. [Suspect]
     Active Substance: ALENDRONATE SODIUM
     Indication: PRODUCT USED FOR UNKNOWN INDICATION
     Dosage: 70 MG, UNK
     Route: 065
     Dates: start: 20090819, end: 2010
  2. FOSAMAX [Suspect]
     Active Substance: ALENDRONATE SODIUM
     Indication: PRODUCT USED FOR UNKNOWN INDICATION
     Dosage: UNK
     Route: 048
     Dates: start: 2007, end: 2010
  3. ALENDRONATE SODIUM. [Suspect]
     Active Substance: ALENDRONATE SODIUM
     Indication: PRODUCT USED FOR UNKNOWN INDICATION
     Dosage: UNK
     Route: 048
     Dates: start: 2007, end: 2010

REACTIONS (24)
  - Deep vein thrombosis [Unknown]
  - Fall [Unknown]
  - Femur fracture [Recovering/Resolving]
  - Scar [Unknown]
  - Hyperlipidaemia [Unknown]
  - Hypertension [Unknown]
  - Restless legs syndrome [Unknown]
  - Fracture delayed union [Recovering/Resolving]
  - Cerebrovascular accident [Unknown]
  - Spinal fusion surgery [Unknown]
  - Osteoporosis [Unknown]
  - Haemorrhagic anaemia [Recovering/Resolving]
  - Facial paresis [Unknown]
  - Femur fracture [Recovering/Resolving]
  - Bursitis [Not Recovered/Not Resolved]
  - Arthropathy [Not Recovered/Not Resolved]
  - Chronic kidney disease [Unknown]
  - Cardiac murmur [Unknown]
  - Meniscus injury [Recovering/Resolving]
  - Anxiety [Unknown]
  - Radius fracture [Recovering/Resolving]
  - Pneumonia [Unknown]
  - Blister [Unknown]
  - Osteoarthritis [Recovering/Resolving]

NARRATIVE: CASE EVENT DATE: 200906
